FAERS Safety Report 8102613-2 (Version None)
Quarter: 2012Q1

REPORT INFORMATION
  Report Type: 
  Country: None (occurrence: None)
  Receive Date: 20120126
  Receipt Date: 20120110
  Transmission Date: 20120608
  Serious: Yes (Other)
  Sender: FDA-Public Use
  Company Number: 2012P1001694

PATIENT
  Age: 75 Year
  Sex: Female
  Weight: 63.05 kg

DRUGS (7)
  1. WARFARIN SODIUM [Concomitant]
  2. DILTIAZEM HCL [Concomitant]
  3. FISH OIL [Concomitant]
  4. ARICEPT [Concomitant]
  5. FOLIC ACID [Concomitant]
  6. AMIODARONE HCL [Suspect]
     Indication: ATRIAL FIBRILLATION
     Dosage: 400 MG;BID;PO
     Route: 048
     Dates: start: 20111203, end: 20120101
  7. CHLORDIAZEPOXIDE [Concomitant]

REACTIONS (3)
  - TREMOR [None]
  - AMNESIA [None]
  - HYPOCHONDRIASIS [None]
